FAERS Safety Report 9395947 (Version 1)
Quarter: 2013Q3

REPORT INFORMATION
  Report Type: Report from Study
  Country: ZA (occurrence: ZA)
  Receive Date: 20130711
  Receipt Date: 20130711
  Transmission Date: 20140515
  Serious: Yes (Life-Threatening)
  Sender: FDA-Public Use
  Company Number: PHHY2011ZA56368

PATIENT
  Age: 59 Year
  Sex: Female

DRUGS (9)
  1. ACLASTA [Suspect]
     Indication: OSTEOPOROSIS
     Dosage: 5 MG/100 ML
     Route: 042
     Dates: start: 201003
  2. ACLASTA [Suspect]
     Dosage: 5 MG/100 ML
     Route: 042
     Dates: start: 20110629
  3. ACLASTA [Suspect]
     Dosage: 5 MG/100 ML
     Route: 042
  4. ACLASTA [Suspect]
     Dosage: 5 MG/100 ML
     Route: 042
     Dates: start: 20130703
  5. CORTISONE [Concomitant]
     Indication: SYSTEMIC LUPUS ERYTHEMATOSUS
  6. OMEPRAZOLE [Concomitant]
  7. SPIRACTIN [Concomitant]
  8. MIVACRON [Concomitant]
  9. MELOXICAM [Concomitant]

REACTIONS (7)
  - Feeling abnormal [Recovering/Resolving]
  - Bone density decreased [Unknown]
  - Joint stiffness [Recovering/Resolving]
  - Headache [Unknown]
  - Eye pain [Not Recovered/Not Resolved]
  - Pain [Unknown]
  - Malaise [Recovering/Resolving]
